FAERS Safety Report 14132886 (Version 1)
Quarter: 2017Q4

REPORT INFORMATION
  Report Type: Spontaneous
  Country: US (occurrence: US)
  Receive Date: 20171027
  Receipt Date: 20171027
  Transmission Date: 20180321
  Serious: No
  Sender: FDA-Public Use
  Company Number: US-ELI_LILLY_AND_COMPANY-US201710000742

PATIENT
  Sex: Male

DRUGS (7)
  1. PROZAC [Suspect]
     Active Substance: FLUOXETINE HYDROCHLORIDE
     Indication: BRAIN INJURY
     Dosage: 90 MG, DAILY
     Route: 048
     Dates: start: 1997
  2. GABAPENTIN. [Concomitant]
     Active Substance: GABAPENTIN
     Indication: NEURALGIA
  3. PROZAC [Suspect]
     Active Substance: FLUOXETINE HYDROCHLORIDE
     Dosage: 90 MG, WEEKLY (1/W)
     Route: 048
  4. MELOXICAM. [Concomitant]
     Active Substance: MELOXICAM
     Indication: PAIN
  5. FLUOXETINE HYDROCHLORIDE 90MG [Suspect]
     Active Substance: FLUOXETINE HYDROCHLORIDE
     Indication: BRAIN INJURY
     Dosage: 90 MG, WEEKLY (1/W)
     Route: 048
  6. TRAMADOL. [Concomitant]
     Active Substance: TRAMADOL
     Indication: PAIN
  7. LIPITOR [Concomitant]
     Active Substance: ATORVASTATIN CALCIUM
     Indication: VASOCONSTRICTION

REACTIONS (4)
  - Dry mouth [Not Recovered/Not Resolved]
  - Oral infection [Recovered/Resolved]
  - Off label use [Unknown]
  - Stomatitis [Recovered/Resolved]
